FAERS Safety Report 9708918 (Version 1)
Quarter: 2013Q4

REPORT INFORMATION
  Report Type: Report from Study
  Country: PL (occurrence: PL)
  Receive Date: 20131125
  Receipt Date: 20131125
  Transmission Date: 20140711
  Serious: No
  Sender: FDA-Public Use
  Company Number: PHHY2013PL133589

PATIENT
  Age: 57 Year
  Sex: Male

DRUGS (8)
  1. GLIVEC [Suspect]
     Indication: CHRONIC MYELOID LEUKAEMIA
     Dosage: 400 MG/DL, UNK
     Dates: start: 20090902
  2. GLIVEC [Suspect]
     Dosage: 400 MG/DL, UNK
     Dates: start: 20111214
  3. GLIVEC [Suspect]
     Dosage: UNK UKN, UNK
     Dates: start: 201205
  4. GLIVEC [Suspect]
     Dosage: UNK UKN, UNK
     Dates: start: 201207
  5. GLIVEC [Suspect]
     Dosage: UNK UKN, UNK
     Dates: start: 201210
  6. HYDROXYCARBAMIDE [Suspect]
     Indication: CHRONIC MYELOID LEUKAEMIA
     Dosage: 1500 MG, DAILY
  7. HYDROXYCARBAMIDE [Suspect]
     Dosage: 1000 MG, DAILY
     Dates: start: 201012
  8. TASIGNA [Suspect]
     Indication: CHRONIC MYELOID LEUKAEMIA
     Dosage: 800 MG,DAILY
     Dates: start: 20121213

REACTIONS (2)
  - Medication error [Unknown]
  - Haematotoxicity [Unknown]
